FAERS Safety Report 4654924-0 (Version None)
Quarter: 2005Q2

REPORT INFORMATION
  Report Type: 
  Country: None (occurrence: None)
  Receive Date: 20050506
  Receipt Date: 20050207
  Transmission Date: 20051028
  Serious: No
  Sender: FDA-Public Use
  Company Number: US-GLAXOSMITHKLINE-A0544271A

PATIENT
  Age: 34 Year
  Sex: Female

DRUGS (6)
  1. AMOXIL [Suspect]
     Dosage: 500MG THREE TIMES PER DAY
     Route: 048
     Dates: start: 20050201, end: 20050206
  2. ALLEGRA [Concomitant]
  3. SINGULAIR [Concomitant]
  4. ADVAIR DISKUS 100/50 [Concomitant]
  5. ASTELIN [Concomitant]
  6. EXCEDRIN (MIGRAINE) [Concomitant]

REACTIONS (2)
  - PEAK EXPIRATORY FLOW RATE DECREASED [None]
  - WHEEZING [None]
